FAERS Safety Report 4561382-3 (Version None)
Quarter: 2005Q1

REPORT INFORMATION
  Report Type: 
  Country: None (occurrence: None)
  Receive Date: 20050126
  Receipt Date: 20041129
  Transmission Date: 20050727
  Serious: Yes (Other)
  Sender: FDA-Public Use
  Company Number: FR-ROCHE-387508

PATIENT
  Age: 31 Year
  Sex: Male
  Weight: 82 kg

DRUGS (1)
  1. PEGASYS [Suspect]
     Indication: HEPATITIS C
     Dosage: STOP DATE ALSO REPORTED AS 24 APR 2004.
     Route: 058
     Dates: start: 20040117, end: 20040426

REACTIONS (2)
  - ASTHENIA [None]
  - HYPOACUSIS [None]
